FAERS Safety Report 15960476 (Version 1)
Quarter: 2019Q1

REPORT INFORMATION
  Report Type: Spontaneous
  Country: US (occurrence: US)
  Receive Date: 20190214
  Receipt Date: 20190214
  Transmission Date: 20190417
  Serious: No
  Sender: FDA-Public Use
  Company Number: US-GLAXOSMITHKLINE-US2019022794

PATIENT
  Age: 32 Year
  Sex: Female

DRUGS (2)
  1. EQUATE NICOTINE [Suspect]
     Active Substance: NICOTINE
     Indication: PRODUCT USED FOR UNKNOWN INDICATION
     Dosage: 21 UNK, UNK
  2. EQUATE NICOTINE [Suspect]
     Active Substance: NICOTINE
     Dosage: 21 MG, UNK

REACTIONS (1)
  - Application site bruise [Unknown]

NARRATIVE: CASE EVENT DATE: 20190206
